FAERS Safety Report 9276700 (Version 2)
Quarter: 2013Q2

REPORT INFORMATION
  Report Type: Spontaneous
  Country: VE (occurrence: VE)
  Receive Date: 20130507
  Receipt Date: 20130617
  Transmission Date: 20140414
  Serious: Yes (Other)
  Sender: FDA-Public Use
  Company Number: PHHY2013VE044515

PATIENT
  Age: 71 Year
  Sex: Female

DRUGS (5)
  1. TASIGNA [Suspect]
     Indication: CHRONIC MYELOID LEUKAEMIA
     Dosage: 400 MG, BID
     Route: 048
  2. LEXOTANIL [Concomitant]
     Dosage: 3 MG, DAILY
     Dates: start: 1980
  3. ACETYLSALICYLIC ACID [Concomitant]
     Dosage: 80 MG, DAILY
     Dates: start: 2006
  4. ADALAT OROS [Concomitant]
  5. BLOKIURET [Concomitant]
     Dosage: 500 MG, DAILY
     Dates: start: 2009

REACTIONS (1)
  - Arterial disorder [Recovering/Resolving]
